FAERS Safety Report 9757891 (Version 1)
Quarter: 2013Q4

REPORT INFORMATION
  Report Type: Spontaneous
  Country: FR (occurrence: FR)
  Receive Date: 20131216
  Receipt Date: 20131216
  Transmission Date: 20140711
  Serious: Yes (Hospitalization)
  Sender: FDA-Public Use
  Company Number: FR-JNJFOC-20131205505

PATIENT
  Age: 65 Year
  Sex: Male

DRUGS (6)
  1. XARELTO [Suspect]
     Indication: CEREBROVASCULAR ACCIDENT PROPHYLAXIS
     Route: 048
     Dates: start: 20131021, end: 20131025
  2. XARELTO [Suspect]
     Indication: ATRIAL FIBRILLATION
     Route: 048
     Dates: start: 20131021, end: 20131025
  3. XARELTO [Suspect]
     Indication: CARDIAC FAILURE
     Route: 048
     Dates: start: 20131021, end: 20131025
  4. CARDENSIEL [Concomitant]
     Route: 065
     Dates: start: 201310
  5. CORDARONE [Concomitant]
     Route: 065
     Dates: start: 201310
  6. LASILIX [Concomitant]
     Route: 065
     Dates: start: 201310

REACTIONS (2)
  - Cerebrovascular accident [Recovered/Resolved]
  - Drug ineffective [Recovering/Resolving]
